FAERS Safety Report 9562351 (Version 2)
Quarter: 2013Q4

REPORT INFORMATION
  Report Type: Spontaneous
  Country: ES (occurrence: ES)
  Receive Date: 20130927
  Receipt Date: 20131022
  Transmission Date: 20140711
  Serious: Yes (Other)
  Sender: FDA-Public Use
  Company Number: ES-UCBSA-098870

PATIENT
  Sex: Male

DRUGS (5)
  1. LACOSAMIDE [Suspect]
     Indication: EPILEPSY
     Route: 048
     Dates: start: 20130905, end: 20130919
  2. LEVETIRACETAM [Suspect]
     Indication: EPILEPSY
     Route: 048
     Dates: start: 20130808, end: 20130905
  3. RIMSTAR [Concomitant]
     Indication: LYMPH NODE TUBERCULOSIS
     Dosage: DOSE: 3.5 TABLETS / DAY
     Route: 048
     Dates: start: 20130905, end: 20130905
  4. RIMSTAR [Concomitant]
     Indication: LYMPH NODE TUBERCULOSIS
     Dosage: DOSE: 3.5 TABLETS A DAY
     Route: 048
     Dates: start: 20130808, end: 20130905
  5. PHENYTOIN [Concomitant]
     Indication: EPILEPSY

REACTIONS (2)
  - Drug reaction with eosinophilia and systemic symptoms [Unknown]
  - Transaminases increased [Recovered/Resolved]
